FAERS Safety Report 10178700 (Version 1)
Quarter: 2014Q2

REPORT INFORMATION
  Report Type: Spontaneous
  Country: US (occurrence: None)
  Receive Date: 20140516
  Receipt Date: 20140516
  Transmission Date: 20141212
  Serious: No
  Sender: FDA-Public Use
  Company Number: None

PATIENT
  Age: 64 Year
  Sex: Male
  Weight: 909.47 kg

DRUGS (12)
  1. MATZIM LA [Suspect]
     Indication: HYPERTENSION
     Route: 048
     Dates: start: 20081201, end: 20140503
  2. METFORMIN [Concomitant]
  3. ASPIRIN [Concomitant]
  4. DICLOFENC SOD [Concomitant]
  5. SINGULAR [Concomitant]
  6. ROPINIROL [Concomitant]
  7. TEVETEN HTC [Concomitant]
  8. CLONIDINE HAL [Concomitant]
  9. DULERA [Concomitant]
  10. PRO-AIR HAG [Concomitant]
  11. LEVEMIR FLEX PEN [Concomitant]
  12. ZYRTEX [Concomitant]

REACTIONS (1)
  - Product contamination physical [None]
